FAERS Safety Report 6141714-5 (Version None)
Quarter: 2009Q1

REPORT INFORMATION
  Report Type: 
  Country: None (occurrence: None)
  Receive Date: 20090331
  Receipt Date: 20090331
  Transmission Date: 20090719
  Serious: Yes (Life-Threatening)
  Sender: FDA-Public Use
  Company Number: None

PATIENT
  Age: 60 Year
  Sex: Female
  Weight: 113.3993 kg

DRUGS (2)
  1. EFFEXOR [Suspect]
     Indication: DEPRESSION
     Dosage: 150MG DAILY PO
     Route: 048
     Dates: start: 19950101, end: 20090216
  2. TOPAMAX [Suspect]
     Indication: TREMOR
     Dosage: 175 MG DAILY PO
     Route: 048
     Dates: start: 20060401, end: 20090216

REACTIONS (2)
  - FATIGUE [None]
  - HYPERSOMNIA [None]
